FAERS Safety Report 23398243 (Version 1)
Quarter: 2024Q1

REPORT INFORMATION
  Report Type: Spontaneous
  Country: US (occurrence: US)
  Receive Date: 20240112
  Receipt Date: 20240112
  Transmission Date: 20240410
  Serious: No
  Sender: FDA-Public Use
  Company Number: US-INSUD PHARMA-2401US00137

PATIENT

DRUGS (2)
  1. TESTOSTERONE [Suspect]
     Active Substance: TESTOSTERONE
     Indication: Blood testosterone decreased
     Dosage: 2 PUMPS DAILY WITH 3 PUMPS ON MON/WED
     Route: 061
     Dates: start: 2023
  2. TESTOSTERONE [Suspect]
     Active Substance: TESTOSTERONE
     Dosage: 2 PUMPS DAILY WITH 3 PUMPS MON/WED/FRI
     Route: 061
     Dates: start: 2022, end: 2023

REACTIONS (7)
  - Rotator cuff syndrome [Not Recovered/Not Resolved]
  - Contusion [Not Recovered/Not Resolved]
  - Arthralgia [Not Recovered/Not Resolved]
  - Tendon rupture [Unknown]
  - Chest pain [Recovered/Resolved]
  - Flatulence [Not Recovered/Not Resolved]
  - Off label use [Unknown]

NARRATIVE: CASE EVENT DATE: 20230501
